FAERS Safety Report 15339833 (Version 1)
Quarter: 2018Q3

REPORT INFORMATION
  Report Type: Spontaneous
  Country: FR (occurrence: FR)
  Receive Date: 20180831
  Receipt Date: 20180831
  Transmission Date: 20181010
  Serious: Yes (Hospitalization)
  Sender: FDA-Public Use
  Company Number: FR-009507513-1808FRA010175

PATIENT
  Age: 74 Year
  Sex: Male
  Weight: 57 kg

DRUGS (4)
  1. AMOXICILLIN SANDOZ [Concomitant]
     Active Substance: AMOXICILLIN
     Indication: LUNG ABSCESS
     Dosage: 1 G THREE TIMES PER DAY FOR FOUR WEEKS
     Route: 048
     Dates: start: 20180115, end: 20180220
  2. AUGMENTIN [Concomitant]
     Active Substance: AMOXICILLIN\CLAVULANATE POTASSIUM
     Indication: LUNG ABSCESS
     Dosage: 1 G THREE TIMES PER DAY FOR FOUR WEEKS
     Route: 048
     Dates: start: 20180115, end: 20180220
  3. KEYTRUDA [Suspect]
     Active Substance: PEMBROLIZUMAB
     Indication: SQUAMOUS CELL CARCINOMA OF LUNG
     Dosage: 20 MG/COURSE I.E. 1,200 MG IN TOTAL
     Route: 042
     Dates: start: 20180129, end: 20180515
  4. TEMESTA [Concomitant]
     Indication: INSOMNIA
     Dosage: 1 MG, QD
     Route: 048

REACTIONS (3)
  - Congestive cardiomyopathy [Recovering/Resolving]
  - Eosinophilia [Recovering/Resolving]
  - Ejection fraction decreased [Recovering/Resolving]

NARRATIVE: CASE EVENT DATE: 20180312
